FAERS Safety Report 15151741 (Version 2)
Quarter: 2018Q3

REPORT INFORMATION
  Report Type: Report from Study
  Country: None (occurrence: US)
  Receive Date: 20180716
  Receipt Date: 20180831
  Transmission Date: 20181010
  Serious: Yes (Hospitalization)
  Sender: FDA-Public Use
  Company Number: US-ABBVIE-18K-163-2404629-00

PATIENT
  Age: 35 Year
  Sex: Male
  Weight: 68.1 kg

DRUGS (8)
  1. ATIVAN [Concomitant]
     Active Substance: LORAZEPAM
     Indication: ANXIETY
  2. VITAMIN D [Concomitant]
     Active Substance: CHOLECALCIFEROL
     Indication: VITAMIN SUPPLEMENTATION
  3. HUMIRA [Suspect]
     Active Substance: ADALIMUMAB
     Indication: CROHN^S DISEASE
     Route: 058
     Dates: start: 201209, end: 20180528
  4. HUMIRA [Suspect]
     Active Substance: ADALIMUMAB
     Route: 058
     Dates: start: 20180712
  5. PURINETHOL [Concomitant]
     Active Substance: MERCAPTOPURINE
     Indication: CROHN^S DISEASE
  6. CITRICAL [Concomitant]
     Active Substance: CALCIUM CITRATE
     Indication: MINERAL SUPPLEMENTATION
  7. ROWASA [Concomitant]
     Active Substance: MESALAMINE
     Indication: CROHN^S DISEASE
  8. DONNATAL [Concomitant]
     Active Substance: ATROPINE SULFATE\HYOSCYAMINE SULFATE\PHENOBARBITAL\SCOPOLAMINE HYDROBROMIDE
     Indication: CROHN^S DISEASE

REACTIONS (13)
  - Asthenia [Recovered/Resolved]
  - Surgical failure [Unknown]
  - Pulmonary necrosis [Recovered/Resolved]
  - Malaise [Recovered/Resolved]
  - Pharyngo-oesophageal diverticulum [Unknown]
  - Regurgitation [Not Recovered/Not Resolved]
  - Pneumonia aspiration [Recovered/Resolved]
  - Drug effect incomplete [Unknown]
  - Dyspnoea [Recovered/Resolved]
  - Oesophageal operation [Unknown]
  - Lung abscess [Recovered/Resolved]
  - Malaise [Recovered/Resolved]
  - Clostridium difficile colitis [Not Recovered/Not Resolved]

NARRATIVE: CASE EVENT DATE: 2017
